FAERS Safety Report 5473545-3 (Version None)
Quarter: 2007Q4

REPORT INFORMATION
  Report Type: 
  Country: None (occurrence: None)
  Receive Date: 20071001
  Receipt Date: 20070418
  Transmission Date: 20080405
  Serious: No
  Sender: FDA-Public Use
  Company Number: US-ASTRAZENECA-2007UW07681

PATIENT
  Age: 65 Year
  Sex: Female
  Weight: 72.6 kg

DRUGS (2)
  1. ARIMIDEX [Suspect]
     Indication: BREAST CANCER FEMALE
     Route: 048
     Dates: start: 20070201
  2. ARIMIDEX [Suspect]
     Indication: MASTECTOMY
     Route: 048
     Dates: start: 20070201

REACTIONS (5)
  - ARTHRALGIA [None]
  - COUGH [None]
  - DRY EYE [None]
  - EYE HAEMORRHAGE [None]
  - HOT FLUSH [None]
